FAERS Safety Report 5313808-5 (Version None)
Quarter: 2007Q2

REPORT INFORMATION
  Report Type: 
  Country: None (occurrence: None)
  Receive Date: 20070501
  Receipt Date: 20070419
  Transmission Date: 20071010
  Serious: Yes (Death, Hospitalization)
  Sender: FDA-Public Use
  Company Number: FR-ROCHE-494189

PATIENT
  Age: 47 Year
  Sex: Male

DRUGS (2)
  1. RIBAVIRIN [Suspect]
     Route: 065
  2. PEG-INTERFERON ALPHA 2B [Suspect]
     Route: 065

REACTIONS (2)
  - CHEMICAL POISONING [None]
  - COMPLETED SUICIDE [None]
